FAERS Safety Report 9484019 (Version 2)
Quarter: 2013Q3

REPORT INFORMATION
  Report Type: Spontaneous
  Country: CA (occurrence: CA)
  Receive Date: 20130828
  Receipt Date: 20130828
  Transmission Date: 20140515
  Serious: Yes (Hospitalization, Other)
  Sender: FDA-Public Use
  Company Number: CA-AMGEN-KDL253247

PATIENT
  Age: 54 Year
  Sex: Male
  Weight: 85 kg

DRUGS (5)
  1. ENBREL [Suspect]
     Indication: RHEUMATOID ARTHRITIS
     Dosage: UNK UNK, QWK
     Route: 065
     Dates: start: 20070404
  2. PREDNISONE [Concomitant]
     Dosage: UNK UNK, UNK
  3. ERGOCALCIFEROL [Concomitant]
     Dosage: UNK UNK, UNK
  4. CALCIUM [Concomitant]
     Dosage: UNK UNK, UNK
  5. ACETAMINOPHEN [Concomitant]
     Dosage: UNK UNK, UNK

REACTIONS (5)
  - Intestinal fistula [Unknown]
  - Arteritis [Unknown]
  - Diverticulitis [Unknown]
  - Herpes virus infection [Not Recovered/Not Resolved]
  - Nasopharyngitis [Not Recovered/Not Resolved]
